FAERS Safety Report 10085116 (Version 1)
Quarter: 2014Q2

REPORT INFORMATION
  Report Type: Spontaneous
  Country: US (occurrence: US)
  Receive Date: 20140417
  Receipt Date: 20140417
  Transmission Date: 20141212
  Serious: No
  Sender: FDA-Public Use
  Company Number: US-PFIZER INC-2014107159

PATIENT
  Sex: Female

DRUGS (1)
  1. NICOTROL NASAL SPRAY [Suspect]
     Dosage: UNK
     Route: 045

REACTIONS (1)
  - Drug intolerance [Unknown]
